FAERS Safety Report 10011747 (Version 1)
Quarter: 2014Q1

REPORT INFORMATION
  Report Type: Spontaneous
  Country: US (occurrence: None)
  Receive Date: 20140313
  Receipt Date: 20140313
  Transmission Date: 20141002
  Serious: Yes (Other)
  Sender: FDA-Public Use
  Company Number: None

PATIENT
  Age: 73 Year
  Sex: Female
  Weight: 52.16 kg

DRUGS (4)
  1. LEVEMIR INSULIN [Suspect]
     Indication: TYPE 2 DIABETES MELLITUS
     Dosage: 5 UNITS QD SUBCUTANEOUS
     Route: 058
     Dates: start: 20130211, end: 20140312
  2. HUMALOG KWIKPEN [Concomitant]
  3. CLINDAMYCIN [Concomitant]
  4. CLOBETASOL OINTMENT 0.05% [Concomitant]

REACTIONS (2)
  - Rash maculo-papular [None]
  - Rash [None]
